FAERS Safety Report 19165745 (Version 2)
Quarter: 2021Q2

REPORT INFORMATION
  Report Type: Spontaneous
  Country: BR (occurrence: BR)
  Receive Date: 20210421
  Receipt Date: 20210504
  Transmission Date: 20210717
  Serious: Yes (Other)
  Sender: FDA-Public Use
  Company Number: BR-PFIZER INC-2020225724

PATIENT
  Age: 66 Year
  Sex: Male
  Weight: 66 kg

DRUGS (3)
  1. SUTENT [Suspect]
     Active Substance: SUNITINIB MALATE
     Indication: RENAL CANCER
     Dosage: 50MG; 1 CAPSULES, FOR 28 DAYS AND REST OF 2 WEEKS
     Dates: start: 20200611
  2. SUTENT [Suspect]
     Active Substance: SUNITINIB MALATE
     Dosage: 50 MG
  3. OMEPRAZOLE. [Concomitant]
     Active Substance: OMEPRAZOLE
     Dosage: UNK

REACTIONS (18)
  - Skin wound [Not Recovered/Not Resolved]
  - Pyrexia [Recovered/Resolved]
  - Gait disturbance [Recovered/Resolved]
  - Haematoma [Not Recovered/Not Resolved]
  - Penis injury [Not Recovered/Not Resolved]
  - Anaemia [Recovered/Resolved]
  - Swelling face [Recovered/Resolved]
  - Skin atrophy [Not Recovered/Not Resolved]
  - Yellow skin [Recovered/Resolved]
  - Blister infected [Recovered/Resolved]
  - Testicular injury [Not Recovered/Not Resolved]
  - Sensitive skin [Not Recovered/Not Resolved]
  - Blood pressure increased [Recovered/Resolved]
  - Wound haemorrhage [Not Recovered/Not Resolved]
  - Blister [Recovered/Resolved]
  - Pain of skin [Recovered/Resolved]
  - Diarrhoea [Recovered/Resolved]
  - Intercepted product prescribing error [Unknown]
